FAERS Safety Report 9829888 (Version 1)
Quarter: 2014Q1

REPORT INFORMATION
  Report Type: Report from Study
  Country: US (occurrence: US)
  Receive Date: 20140120
  Receipt Date: 20140120
  Transmission Date: 20141002
  Serious: Yes (Hospitalization)
  Sender: FDA-Public Use
  Company Number: US-ROCHE-1334911

PATIENT
  Age: 82 Year
  Sex: Male

DRUGS (4)
  1. LUCENTIS [Suspect]
     Indication: AGE-RELATED MACULAR DEGENERATION
     Route: 050
  2. LUCENTIS [Suspect]
     Indication: AGE-RELATED MACULAR DEGENERATION
  3. SIMVASTATIN [Concomitant]
     Indication: BLOOD CHOLESTEROL
     Route: 065
  4. LISINOPRIL [Concomitant]
     Indication: BLOOD PRESSURE
     Route: 065

REACTIONS (3)
  - Cerebrovascular accident [Recovered/Resolved]
  - Speech disorder [Recovered/Resolved]
  - Carotid artery disease [Unknown]
